FAERS Safety Report 7315493-X (Version None)
Quarter: 2011Q1

REPORT INFORMATION
  Report Type: 
  Country: None (occurrence: None)
  Receive Date: 20110218
  Receipt Date: 20110218
  Transmission Date: 20110831
  Serious: Yes (Hospitalization)
  Sender: FDA-Public Use
  Company Number: None

PATIENT
  Age: 70 Year
  Sex: Female
  Weight: 72.7 kg

DRUGS (16)
  1. LYSINE [Concomitant]
  2. CARVEDILOL [Concomitant]
  3. LISINOPRIL [Concomitant]
  4. ISOSORBIDE DINITRATE [Concomitant]
  5. LEVOXYL [Concomitant]
  6. FLEXERIL [Concomitant]
  7. PERCOCET [Concomitant]
  8. COUMADIN [Suspect]
     Indication: CORONARY ARTERY DISEASE
     Dosage: 5MG / 2.5MG TF /MWTHSS PO CHRONIC
     Route: 048
  9. TRAZODONE HCL [Concomitant]
  10. PROTONIX [Concomitant]
  11. DANAZOL [Concomitant]
  12. FLECTOR [Concomitant]
  13. SIMVASTATIN [Concomitant]
  14. CALCIUM [Concomitant]
  15. XANAX [Concomitant]
  16. OXYCONTIN [Concomitant]

REACTIONS (5)
  - INTERNATIONAL NORMALISED RATIO INCREASED [None]
  - MYOCARDIAL INFARCTION [None]
  - HYPOPHAGIA [None]
  - HAEMOPTYSIS [None]
  - MENTAL STATUS CHANGES [None]
